FAERS Safety Report 8097069-2 (Version None)
Quarter: 2012Q1

REPORT INFORMATION
  Report Type: 
  Country: None (occurrence: None)
  Receive Date: 20120126
  Receipt Date: 20120113
  Transmission Date: 20120608
  Serious: Yes (Death, Hospitalization, Disabling, Other)
  Sender: FDA-Public Use
  Company Number: 2012MA000636

PATIENT
  Age: 81 Year
  Sex: Female

DRUGS (25)
  1. SOLU-MEDROL [Concomitant]
  2. FLONASE [Concomitant]
  3. POTASSIUM CHLORIDE [Concomitant]
  4. LASIX [Concomitant]
  5. COUMADIN [Concomitant]
  6. FOSAMAX [Concomitant]
  7. PREDNISONE [Concomitant]
  8. ALBUTEROL [Concomitant]
  9. CARDIZEM [Concomitant]
  10. POTASSIUM [Concomitant]
  11. SPIRIVA [Concomitant]
  12. VICODIN [Concomitant]
  13. ZITHROMAX [Concomitant]
  14. ZOCOR [Concomitant]
  15. ASPIRIN [Concomitant]
  16. AUGMENTIN '125' [Concomitant]
  17. DUONEB [Concomitant]
  18. LOPRESSOR [Concomitant]
  19. ZANTAC [Concomitant]
  20. ZESTRIL [Concomitant]
  21. DIGOXIN [Suspect]
     Indication: PRODUCT USED FOR UNKNOWN INDICATION
     Dosage: 250 MCG; QD; PO
     Route: 048
     Dates: start: 20080421, end: 20080505
  22. ASTELIN [Concomitant]
  23. PEPCID [Concomitant]
  24. CELEBREX [Concomitant]
  25. GLUCOTROL [Concomitant]

REACTIONS (58)
  - ATRIAL FIBRILLATION [None]
  - PRODUCTIVE COUGH [None]
  - CARBON DIOXIDE INCREASED [None]
  - BLOOD THYROID STIMULATING HORMONE DECREASED [None]
  - ELECTROCARDIOGRAM ST-T CHANGE [None]
  - TOXICITY TO VARIOUS AGENTS [None]
  - CONDITION AGGRAVATED [None]
  - HEART RATE IRREGULAR [None]
  - PNEUMONIA [None]
  - BACK PAIN [None]
  - ALANINE AMINOTRANSFERASE INCREASED [None]
  - BLOOD PRESSURE SYSTOLIC INCREASED [None]
  - MYOCARDIAL INFARCTION [None]
  - BREATH SOUNDS ABNORMAL [None]
  - HAEMATOCRIT DECREASED [None]
  - CHEST PAIN [None]
  - RENAL FAILURE ACUTE [None]
  - ASTHENIA [None]
  - ATELECTASIS [None]
  - COAGULOPATHY [None]
  - CARDIAC MURMUR [None]
  - METABOLIC ALKALOSIS [None]
  - TRICUSPID VALVE INCOMPETENCE [None]
  - PERIPHERAL VASCULAR DISORDER [None]
  - HAEMOGLOBIN DECREASED [None]
  - CHRONIC OBSTRUCTIVE PULMONARY DISEASE [None]
  - LUNG INFILTRATION [None]
  - PALPITATIONS [None]
  - TRI-IODOTHYRONINE DECREASED [None]
  - WHEEZING [None]
  - CARDIOMEGALY [None]
  - HYPERCHOLESTEROLAEMIA [None]
  - SPUTUM DISCOLOURED [None]
  - TREATMENT NONCOMPLIANCE [None]
  - CARDIOACTIVE DRUG LEVEL INCREASED [None]
  - WALKING AID USER [None]
  - ASPARTATE AMINOTRANSFERASE INCREASED [None]
  - DYSPNOEA EXERTIONAL [None]
  - RENAL FAILURE CHRONIC [None]
  - PULMONARY HYPERTENSION [None]
  - DIABETES MELLITUS INADEQUATE CONTROL [None]
  - FATIGUE [None]
  - RESPIRATORY ACIDOSIS [None]
  - LEFT VENTRICULAR HYPERTROPHY [None]
  - MITRAL VALVE INCOMPETENCE [None]
  - PYREXIA [None]
  - ACUTE RESPIRATORY FAILURE [None]
  - DRUG LEVEL BELOW THERAPEUTIC [None]
  - RESPIRATORY RATE INCREASED [None]
  - RALES [None]
  - RHONCHI [None]
  - HEART RATE DECREASED [None]
  - ARTERIOSCLEROSIS [None]
  - ESSENTIAL HYPERTENSION [None]
  - MALAISE [None]
  - BRONCHITIS [None]
  - MYOCARDIAL ISCHAEMIA [None]
  - WHITE BLOOD CELL COUNT INCREASED [None]
